FAERS Safety Report 6108735-X (Version None)
Quarter: 2009Q1

REPORT INFORMATION
  Report Type: 
  Country: None (occurrence: None)
  Receive Date: 20090309
  Receipt Date: 20090309
  Transmission Date: 20090719
  Serious: Yes (Other)
  Sender: FDA-Public Use
  Company Number: None

PATIENT
  Age: 54 Year
  Sex: Female
  Weight: 63.5036 kg

DRUGS (2)
  1. BUDEPRION XL 300 MG XL TEVA [Suspect]
     Indication: DEPRESSION
     Dosage: 300 MG XL ONCE A DAY PO
     Route: 048
     Dates: start: 20090228, end: 20090305
  2. BUDEPRION XL 300 MG XL TEVA [Suspect]

REACTIONS (6)
  - ACTIVITIES OF DAILY LIVING IMPAIRED [None]
  - AGITATION [None]
  - BACK DISORDER [None]
  - INSOMNIA [None]
  - MUSCLE DISORDER [None]
  - PRODUCT QUALITY ISSUE [None]
